FAERS Safety Report 23468494 (Version 2)
Quarter: 2024Q1

REPORT INFORMATION
  Report Type: Report from Study
  Country: CA (occurrence: CA)
  Receive Date: 20240202
  Receipt Date: 20240205
  Transmission Date: 20240410
  Serious: Yes (Other)
  Sender: FDA-Public Use
  Company Number: CA-ABBVIE-5619305

PATIENT
  Age: 65 Year
  Sex: Female

DRUGS (3)
  1. BOTOX [Suspect]
     Active Substance: ONABOTULINUMTOXINA
     Indication: Migraine
     Dosage: TIME INTERVAL: AS NECESSARY
     Route: 065
     Dates: start: 20221103, end: 20221103
  2. TEVA ZOLMITRIPTAN [Concomitant]
     Indication: Product used for unknown indication
  3. DICLOFENAC [Concomitant]
     Active Substance: DICLOFENAC
     Indication: Product used for unknown indication

REACTIONS (1)
  - Papillary cystadenoma lymphomatosum [Recovering/Resolving]

NARRATIVE: CASE EVENT DATE: 20231011
